FAERS Safety Report 5221777-1 (Version None)
Quarter: 2007Q1

REPORT INFORMATION
  Report Type: 
  Country: None (occurrence: None)
  Receive Date: 20070129
  Receipt Date: 20070122
  Transmission Date: 20070707
  Serious: Yes (Hospitalization)
  Sender: FDA-Public Use
  Company Number: US-JNJFOC-20070106081

PATIENT
  Sex: Female
  Weight: 76.66 kg

DRUGS (7)
  1. REMICADE [Suspect]
     Route: 042
  2. REMICADE [Suspect]
     Route: 042
  3. REMICADE [Suspect]
     Route: 042
  4. REMICADE [Suspect]
     Indication: RHEUMATOID ARTHRITIS
     Route: 042
  5. METHOTREXATE [Concomitant]
     Indication: RHEUMATOID ARTHRITIS
  6. PIAXINOL [Concomitant]
     Indication: RHEUMATOID ARTHRITIS
  7. MOBIC [Concomitant]
     Indication: RHEUMATOID ARTHRITIS

REACTIONS (1)
  - LABORATORY TEST ABNORMAL [None]
